FAERS Safety Report 7825745-2 (Version None)
Quarter: 2011Q4

REPORT INFORMATION
  Report Type: 
  Country: None (occurrence: None)
  Receive Date: 20111019
  Receipt Date: 20111013
  Transmission Date: 20120403
  Serious: Yes (Other)
  Sender: FDA-Public Use
  Company Number: PHHY2011BE81309

PATIENT
  Age: 81 Year
  Sex: Female

DRUGS (5)
  1. AMLODIPINE BESYLATE [Concomitant]
  2. IRBESARTAN AND HYDROCHLOROTHIAZIDE [Concomitant]
  3. AFINITOR [Suspect]
     Dosage: 5 MG, UNK
     Route: 048
  4. BISOPROLOL FUMARATE [Concomitant]
  5. AFINITOR [Suspect]
     Indication: RENAL CELL CARCINOMA
     Dosage: 10 MG, UNK
     Route: 048
     Dates: start: 20110620, end: 20110726

REACTIONS (5)
  - DYSPNOEA [None]
  - PYREXIA [None]
  - LUNG DISORDER [None]
  - COUGH [None]
  - OEDEMA PERIPHERAL [None]
